FAERS Safety Report 17710161 (Version 3)
Quarter: 2020Q2

REPORT INFORMATION
  Report Type: Spontaneous
  Country: RU (occurrence: RU)
  Receive Date: 20200427
  Receipt Date: 20200528
  Transmission Date: 20200714
  Serious: Yes (Other)
  Sender: FDA-Public Use
  Company Number: RU-SA-2020SA077516

PATIENT
  Age: 77 Year
  Sex: Female
  Weight: 95 kg

DRUGS (5)
  1. INSULIN HUMAN NOS [Suspect]
     Active Substance: INSULIN HUMAN
     Indication: TYPE 2 DIABETES MELLITUS
     Dosage: 10 IU, TID
     Route: 058
     Dates: start: 202002
  2. RINSULIN R [Concomitant]
     Indication: TYPE 2 DIABETES MELLITUS
     Dosage: 10 IU, TID
     Route: 058
     Dates: start: 2017, end: 202002
  3. BISOPROLOL [Concomitant]
     Active Substance: BISOPROLOL
     Indication: CARDIAC DISORDER
     Dosage: 5 MG, QD
     Route: 048
  4. LANTUS SOLOSTAR [Concomitant]
     Active Substance: INSULIN GLARGINE
     Indication: TYPE 2 DIABETES MELLITUS
     Dosage: UNK
     Route: 058
     Dates: start: 2011, end: 2017
  5. TOUJEO [Suspect]
     Active Substance: INSULIN GLARGINE
     Indication: TYPE 2 DIABETES MELLITUS
     Dosage: 20 IU, QD
     Route: 058
     Dates: start: 2017

REACTIONS (9)
  - Blood glucose increased [Not Recovered/Not Resolved]
  - Blood pressure fluctuation [Not Recovered/Not Resolved]
  - Loss of consciousness [Not Recovered/Not Resolved]
  - Confusional state [Not Recovered/Not Resolved]
  - Upper limb fracture [Recovering/Resolving]
  - Fracture pain [Recovering/Resolving]
  - Pyrexia [Not Recovered/Not Resolved]
  - Malaise [Unknown]
  - Cerebrovascular accident [Recovered/Resolved]

NARRATIVE: CASE EVENT DATE: 202002
